FAERS Safety Report 6617409-8 (Version None)
Quarter: 2010Q1

REPORT INFORMATION
  Report Type: 
  Country: None (occurrence: None)
  Receive Date: 20100308
  Receipt Date: 20100222
  Transmission Date: 20100710
  Serious: Yes (Other)
  Sender: FDA-Public Use
  Company Number: US-BAYER-201014829NA

PATIENT
  Sex: Female

DRUGS (1)
  1. MIRENA [Suspect]
     Indication: CONTRACEPTION
     Dosage: FREQUENCY: CONTINUOUS
     Route: 015

REACTIONS (4)
  - ABDOMINAL PAIN LOWER [None]
  - MIGRAINE [None]
  - URTICARIA [None]
  - VAGINAL HAEMORRHAGE [None]
